FAERS Safety Report 5472167-8 (Version None)
Quarter: 2007Q3

REPORT INFORMATION
  Report Type: 
  Country: None (occurrence: None)
  Receive Date: 20070928
  Receipt Date: 20070921
  Transmission Date: 20080115
  Serious: Yes (Other)
  Sender: FDA-Public Use
  Company Number: FR-GENENTECH-248181

PATIENT
  Sex: Female
  Weight: 70 kg

DRUGS (14)
  1. RITUXIMAB [Suspect]
     Indication: B-CELL LYMPHOMA
     Dosage: 650 UNK, UNK
     Route: 042
     Dates: start: 20050915
  2. CYCLOPHOSPHAMIDE [Suspect]
     Indication: B-CELL LYMPHOMA
     Dosage: 1300 UNK, UNK
     Route: 042
     Dates: start: 20050915
  3. DOXORUBICIN HCL [Suspect]
     Indication: B-CELL LYMPHOMA
     Dosage: 90.085 UNK, UNK
     Route: 042
     Dates: start: 20050915
  4. VINCRISTINE [Concomitant]
     Indication: B-CELL LYMPHOMA
     Dosage: 2 UNK, UNK
     Route: 042
     Dates: start: 20050915
  5. PREDNISONE [Concomitant]
     Indication: B-CELL LYMPHOMA
     Dosage: 80 UNK, UNK
     Route: 042
     Dates: start: 20050915
  6. ZECLAR [Concomitant]
     Indication: PROPHYLAXIS
     Dates: start: 20070413
  7. TRIFLUCAN [Concomitant]
     Indication: DRUG USE FOR UNKNOWN INDICATION
     Dosage: UNK, UNK
  8. TENSTATEN [Concomitant]
     Indication: HYPERTENSION
  9. FOSAMAX [Concomitant]
     Indication: OSTEOPOROSIS
  10. NEUPOGEN [Concomitant]
     Indication: NEUTROPENIA
  11. CIFLOX [Concomitant]
     Indication: PROPHYLAXIS
  12. TAVANIC [Concomitant]
     Indication: PYREXIA
  13. ZELITREX [Concomitant]
     Indication: HERPES VIRUS INFECTION
  14. ROCEPHIN [Concomitant]
     Indication: PURPURA

REACTIONS (1)
  - REFRACTORY ANAEMIA [None]
